FAERS Safety Report 4968902-5 (Version None)
Quarter: 2006Q2

REPORT INFORMATION
  Report Type: 
  Country: None (occurrence: None)
  Receive Date: 20060411
  Receipt Date: 20051114
  Transmission Date: 20061013
  Serious: Yes (Death, Hospitalization, Other)
  Sender: FDA-Public Use
  Company Number: US-MERCK-0511USA02463

PATIENT
  Age: 81 Year
  Sex: Female
  Weight: 91 kg

DRUGS (1)
  1. VIOXX [Suspect]
     Indication: ARTHRITIS
     Route: 048
     Dates: start: 19991101

REACTIONS (21)
  - ARTERIOSCLEROSIS [None]
  - ARTERIOSCLEROSIS CORONARY ARTERY [None]
  - ARTHRALGIA [None]
  - CARDIAC FAILURE CONGESTIVE [None]
  - CELLULITIS [None]
  - CEREBRAL ATROPHY [None]
  - CEREBROVASCULAR ACCIDENT [None]
  - CEREBROVASCULAR DISORDER [None]
  - CORONARY ARTERY DISEASE [None]
  - GOUT [None]
  - HEPATIC CIRRHOSIS [None]
  - LEUKAEMIA [None]
  - METABOLIC ENCEPHALOPATHY [None]
  - OSTEOMYELITIS [None]
  - PATELLA FRACTURE [None]
  - PULMONARY HYPERTENSION [None]
  - REFLUX GASTRITIS [None]
  - REFRACTORY ANAEMIA [None]
  - RENAL FAILURE [None]
  - THROMBOSIS [None]
  - VARICES OESOPHAGEAL [None]
